FAERS Safety Report 11292423 (Version 2)
Quarter: 2015Q3

REPORT INFORMATION
  Report Type: Spontaneous
  Country: CA (occurrence: CA)
  Receive Date: 20150722
  Receipt Date: 20150805
  Transmission Date: 20151125
  Serious: Yes (Hospitalization, Other)
  Sender: FDA-Public Use
  Company Number: CA-PFIZER INC-2015238530

PATIENT
  Age: 21 Year
  Sex: Female

DRUGS (1)
  1. PHENYTOIN. [Suspect]
     Active Substance: PHENYTOIN
     Indication: SEIZURE
     Dosage: 300 MG, DAILY

REACTIONS (10)
  - Jaundice [Recovered/Resolved]
  - Eosinophil count increased [Recovered/Resolved]
  - Pleural effusion [Recovered/Resolved]
  - Dermatitis exfoliative [Recovered/Resolved]
  - Hepatomegaly [Recovered/Resolved]
  - Lymphadenopathy [Recovered/Resolved]
  - White blood cell count increased [Recovered/Resolved]
  - Drug-induced liver injury [Recovered/Resolved]
  - Pyrexia [Recovered/Resolved]
  - Pruritus [Recovered/Resolved]
